FAERS Safety Report 9837067 (Version 1)
Quarter: 2014Q1

REPORT INFORMATION
  Report Type: Report from Study
  Country: EC (occurrence: EC)
  Receive Date: 20140123
  Receipt Date: 20140123
  Transmission Date: 20141002
  Serious: Yes (Other)
  Sender: FDA-Public Use
  Company Number: EC-ROCHE-1332898

PATIENT
  Age: 57 Year
  Sex: Female

DRUGS (7)
  1. BONVIVA [Suspect]
     Indication: OSTEOPOROSIS
     Route: 042
     Dates: start: 20101106
  2. BONVIVA [Suspect]
     Route: 042
     Dates: start: 2013
  3. BONVIVA [Suspect]
     Indication: OSTEOPOROSIS
     Route: 065
     Dates: start: 2012
  4. AZITHROMYCIN [Concomitant]
  5. GENTAMICIN [Concomitant]
  6. OMEPRAZOL [Concomitant]
  7. DICLOFENAC [Concomitant]

REACTIONS (1)
  - Ovarian cyst [Recovered/Resolved]
